FAERS Safety Report 4428664-7 (Version None)
Quarter: 2004Q3

REPORT INFORMATION
  Report Type: 
  Country: None (occurrence: None)
  Receive Date: 20040818
  Receipt Date: 20030924
  Transmission Date: 20050211
  Serious: No
  Sender: FDA-Public Use
  Company Number: US-BRISTOL-MYERS SQUIBB COMPANY-12393419

PATIENT
  Sex: Male

DRUGS (1)
  1. TEQUIN [Suspect]
     Route: 042
     Dates: start: 20030922, end: 20030924

REACTIONS (1)
  - HEPATIC ENZYME INCREASED [None]
